FAERS Safety Report 23559875 (Version 2)
Quarter: 2024Q1

REPORT INFORMATION
  Report Type: Spontaneous
  Country: US (occurrence: US)
  Receive Date: 20240223
  Receipt Date: 20240314
  Transmission Date: 20240410
  Serious: No
  Sender: FDA-Public Use
  Company Number: US-BAYER-2024A026092

PATIENT
  Age: 84 Year
  Sex: Female

DRUGS (1)
  1. MIRALAX [Suspect]
     Active Substance: POLYETHYLENE GLYCOL 3350
     Indication: Gastrointestinal disorder
     Dosage: SHE POURS THE POWDER IN 4 TO 6 OUNCES OF WATER. DOSE
     Route: 048

REACTIONS (3)
  - Product use issue [Unknown]
  - Proctalgia [Recovered/Resolved]
  - Haemorrhoids [Recovered/Resolved]
